FAERS Safety Report 12615942 (Version 1)
Quarter: 2016Q3

REPORT INFORMATION
  Report Type: Spontaneous
  Country: GB (occurrence: GB)
  Receive Date: 20160802
  Receipt Date: 20160802
  Transmission Date: 20161109
  Serious: Yes (Disabling)
  Sender: FDA-Public Use
  Company Number: GB-MYLANLABS-2016M1030778

PATIENT

DRUGS (1)
  1. WARFARIN [Suspect]
     Active Substance: WARFARIN
     Indication: ATRIAL FIBRILLATION
     Dosage: UNK
     Dates: end: 201601

REACTIONS (3)
  - Migraine [Recovered/Resolved]
  - Abnormal loss of weight [Recovered/Resolved]
  - Fatigue [Recovered/Resolved]
